FAERS Safety Report 8470691-7 (Version None)
Quarter: 2012Q2

REPORT INFORMATION
  Report Type: 
  Country: None (occurrence: None)
  Receive Date: 20120627
  Receipt Date: 20120622
  Transmission Date: 20120825
  Serious: Yes (Hospitalization)
  Sender: FDA-Public Use
  Company Number: US-PFIZER INC-2012150986

PATIENT
  Sex: Female
  Weight: 94.785 kg

DRUGS (12)
  1. ABILIFY [Interacting]
     Indication: DEPRESSION
     Dosage: UNK, (SPLITTING 15 MG TABLET) DAILY
     Route: 048
  2. LISINOPRIL [Interacting]
     Dosage: 10 MG, DAILY
  3. OMEPRAZOLE [Interacting]
     Indication: GASTROOESOPHAGEAL REFLUX DISEASE
     Dosage: 20.6 MG, DAILY
  4. BISACODYL [Interacting]
     Indication: IRRITABLE BOWEL SYNDROME
     Dosage: 5 MG, DAILY
  5. LYRICA [Suspect]
     Indication: FIBROMYALGIA
     Dosage: 100 MG, 3X/DAY
     Dates: start: 20110101
  6. ATORVASTATIN CALCIUM [Interacting]
     Indication: BLOOD CHOLESTEROL INCREASED
     Dosage: 80 MG, DAILY
  7. METHADONE HCL [Interacting]
     Indication: BACK DISORDER
     Dosage: 10 MG, 3X/DAY
  8. ALLEGRA [Interacting]
     Indication: HYPERSENSITIVITY
     Dosage: UNK, DAILY
  9. ASPIRIN [Interacting]
     Indication: HYPERTENSION
     Dosage: 81 MG, DAILY
  10. VITAMIN D [Interacting]
     Indication: VITAMIN D DEFICIENCY
     Dosage: 50000 IU, WEEKLY
  11. TAMSULOSIN HYDROCHLORIDE [Interacting]
     Indication: BLADDER OBSTRUCTION
     Dosage: 0.4 MG, DAILY
     Route: 048
  12. OSTEO BI-FLEX [Interacting]
     Indication: BACK PAIN
     Dosage: UNK,DAILY

REACTIONS (1)
  - DRUG INTERACTION [None]
